FAERS Safety Report 18745554 (Version 1)
Quarter: 2021Q1

REPORT INFORMATION
  Report Type: Spontaneous
  Country: US (occurrence: US)
  Receive Date: 20210115
  Receipt Date: 20210115
  Transmission Date: 20210419
  Serious: No
  Sender: FDA-Public Use
  Company Number: US-ASTRAZENECA-2021A006183

PATIENT
  Sex: Male
  Weight: 106.6 kg

DRUGS (4)
  1. BYDUREON BCISE [Suspect]
     Active Substance: EXENATIDE
     Indication: DIABETES MELLITUS
     Dosage: STARTED ABOUT 8 MONTH AGO
     Route: 058
     Dates: start: 2020
  2. METFORMIN [Concomitant]
     Active Substance: METFORMIN HYDROCHLORIDE
     Indication: TYPE 2 DIABETES MELLITUS
  3. TRUVECAY [Concomitant]
     Indication: TYPE 2 DIABETES MELLITUS
     Dosage: 70 DAILY
  4. HUMALOG [Concomitant]
     Active Substance: INSULIN LISPRO
     Indication: DIABETES MELLITUS
     Dosage: 10 BEFORE MEALS

REACTIONS (6)
  - Incorrect dose administered by device [Unknown]
  - Intentional device misuse [Unknown]
  - Injection site haemorrhage [Unknown]
  - Device leakage [Unknown]
  - Glycosylated haemoglobin decreased [Unknown]
  - Wrong technique in device usage process [Unknown]
